FAERS Safety Report 12162800 (Version 1)
Quarter: 2016Q1

REPORT INFORMATION
  Report Type: Spontaneous
  Country: US (occurrence: US)
  Receive Date: 20160309
  Receipt Date: 20160309
  Transmission Date: 20160526
  Serious: No
  Sender: FDA-Public Use
  Company Number: US-BRISTOL-MYERS SQUIBB COMPANY-BMS-2016-017527

PATIENT
  Age: 79 Year
  Sex: Male

DRUGS (3)
  1. GLUCERNA                           /07499801/ [Concomitant]
     Indication: PRODUCT USED FOR UNKNOWN INDICATION
     Route: 065
  2. SPRYCEL [Suspect]
     Active Substance: DASATINIB
     Indication: CHRONIC MYELOID LEUKAEMIA
     Dosage: 100 MG, UNK
     Route: 048
     Dates: start: 201510
  3. SPRYCEL [Suspect]
     Active Substance: DASATINIB
     Dosage: 80 MG, UNK
     Route: 048

REACTIONS (4)
  - Decreased appetite [Unknown]
  - Nasopharyngitis [Unknown]
  - Tremor [Unknown]
  - Weight decreased [Unknown]
